FAERS Safety Report 8985735 (Version 4)
Quarter: 2013Q1

REPORT INFORMATION
  Report Type: Spontaneous
  Country: JP (occurrence: JP)
  Receive Date: 20121226
  Receipt Date: 20130131
  Transmission Date: 20140127
  Serious: Yes (Life-Threatening, Hospitalization, Other)
  Sender: FDA-Public Use
  Company Number: JP-B.I. PHARMACEUTICALS,INC./RIDGEFIELD-2012-BI-03965GD

PATIENT
  Age: 61 Year
  Sex: Male
  Weight: 66.5 kg

DRUGS (9)
  1. PRADAXA [Suspect]
     Indication: ANTICOAGULANT THERAPY
     Dosage: 300 MG
     Route: 048
     Dates: start: 20120425
  2. PRADAXA [Suspect]
     Indication: HEART VALVE REPLACEMENT
  3. URALYT [Concomitant]
     Dosage: 1 DF
     Route: 048
     Dates: end: 20120603
  4. ALLOPURINOL [Concomitant]
     Dosage: 100 MG
     Route: 048
     Dates: end: 20120603
  5. ALDACTONE A [Concomitant]
     Dosage: 25 MG
     Route: 048
     Dates: end: 20120603
  6. TAKEPRON [Concomitant]
     Route: 048
     Dates: end: 20120603
  7. BAYASPIRIN [Concomitant]
     Dosage: 100 MG
     Route: 048
  8. MAGMITT [Concomitant]
     Dosage: 990 MG
     Route: 048
  9. PROMAC [Concomitant]
     Dosage: 150 MG
     Route: 048
     Dates: end: 20120603

REACTIONS (3)
  - Carotid arterial embolus [Recovered/Resolved with Sequelae]
  - Hemiplegia [Unknown]
  - Off label use [Unknown]
